APPROVED DRUG PRODUCT: TRILAFON
Active Ingredient: PERPHENAZINE
Strength: 2MG/5ML
Dosage Form/Route: SYRUP;ORAL
Application: N011294 | Product #002
Applicant: SCHERING CORP SUB SCHERING PLOUGH CORP
Approved: Approved Prior to Jan 1, 1982 | RLD: No | RS: No | Type: DISCN